FAERS Safety Report 16634559 (Version 2)
Quarter: 2019Q4

REPORT INFORMATION
  Report Type: Spontaneous
  Country: JP (occurrence: JP)
  Receive Date: 20190726
  Receipt Date: 20191009
  Transmission Date: 20200122
  Serious: Yes (Life-Threatening, Hospitalization, Disabling, Other)
  Sender: FDA-Public Use
  Company Number: JP-REGENERON PHARMACEUTICALS, INC.-2019-44433

PATIENT

DRUGS (6)
  1. LUCENTIS [Concomitant]
     Active Substance: RANIBIZUMAB
     Indication: PRODUCT USED FOR UNKNOWN INDICATION
  2. POVIDONE-IODINE. [Concomitant]
     Active Substance: POVIDONE-IODINE
     Indication: INFECTION PROPHYLAXIS
     Dosage: APPROPRIATE DOSE TO THE RIGHT EYE (DISINFECTION BEFORE INTRAVITREAL INJECTION)
     Route: 047
     Dates: start: 20181101, end: 20181101
  3. XYLOCAINE [Concomitant]
     Active Substance: LIDOCAINE HYDROCHLORIDE
     Indication: PRODUCT USED FOR UNKNOWN INDICATION
  4. EYLEA [Suspect]
     Active Substance: AFLIBERCEPT
     Indication: RETINAL VEIN OCCLUSION
     Dosage: 0.05 ML, ONCE (RIGHT EYE)
     Route: 031
     Dates: start: 20181101, end: 20181101
  5. EYLEA [Suspect]
     Active Substance: AFLIBERCEPT
     Indication: DIABETIC RETINAL OEDEMA
     Dosage: UNK
  6. VEGAMOX [Concomitant]
     Active Substance: MOXIFLOXACIN HYDROCHLORIDE
     Indication: INFECTION PROPHYLAXIS
     Dosage: 4 DROPS A DAY, RIGHT EYE
     Route: 047
     Dates: start: 20181101, end: 20181104

REACTIONS (5)
  - Chest discomfort [Recovered/Resolved]
  - Ocular ischaemic syndrome [Not Recovered/Not Resolved]
  - Cerebellar infarction [Recovered/Resolved]
  - Renal failure [Not Recovered/Not Resolved]
  - Chest pain [Unknown]

NARRATIVE: CASE EVENT DATE: 20181207
